FAERS Safety Report 15650725 (Version 1)
Quarter: 2018Q4

REPORT INFORMATION
  Report Type: Spontaneous
  Country: IT (occurrence: IT)
  Receive Date: 20181123
  Receipt Date: 20181123
  Transmission Date: 20190205
  Serious: Yes (Other)
  Sender: FDA-Public Use
  Company Number: IT-BEH-2018097015

PATIENT
  Age: 47 Year
  Sex: Female
  Weight: 122 kg

DRUGS (4)
  1. HUMAN IMMUNOGLOBULIN IV (INN) [Suspect]
     Active Substance: HUMAN IMMUNOGLOBULIN G
     Indication: ENCEPHALITIS AUTOIMMUNE
     Dosage: 3 DF, TOT
     Route: 042
     Dates: start: 20181101, end: 20181101
  2. PREDNISONE. [Concomitant]
     Active Substance: PREDNISONE
     Dosage: 75 MG, UNK
     Route: 048
     Dates: start: 20181030
  3. DIAZEPAM. [Concomitant]
     Active Substance: DIAZEPAM
     Dosage: 10 GTT, UNK
     Route: 048
     Dates: start: 20181025
  4. LEVETIRACETAM. [Concomitant]
     Active Substance: LEVETIRACETAM
     Dosage: 1000 MG, UNK
     Route: 048
     Dates: start: 20181025

REACTIONS (1)
  - Erythema [Recovered/Resolved]

NARRATIVE: CASE EVENT DATE: 20181101
